FAERS Safety Report 8726242 (Version 3)
Quarter: 2012Q4

REPORT INFORMATION
  Report Type: 
  Country: US (occurrence: US)
  Receive Date: 20120816
  Receipt Date: 20121018
  Transmission Date: 20130627
  Serious: Yes (Hospitalization)
  Sender: FDA-Public Use
  Company Number: US-PFIZER INC-2012195882

PATIENT
  Age: 61 Year
  Sex: Female
  Weight: 116 kg

DRUGS (1)
  1. SOMAVERT [Suspect]
     Indication: ACROMEGALY
     Dosage: 200 units, daily
     Dates: start: 200901

REACTIONS (1)
  - Cerebrovascular accident [Unknown]
